FAERS Safety Report 6230189-3 (Version None)
Quarter: 2009Q2

REPORT INFORMATION
  Report Type: 
  Country: None (occurrence: None)
  Receive Date: 20090615
  Receipt Date: 20090603
  Transmission Date: 20091009
  Serious: Yes (Other)
  Sender: FDA-Public Use
  Company Number: US-PFIZER INC-2009222945

PATIENT
  Age: 67 Year
  Sex: Male

DRUGS (3)
  1. METHYLPREDNISOLONE ACETATE AND METHYLPREDNISOLONE AND METHYLPREDNISOLO [Suspect]
     Indication: PAIN MANAGEMENT
     Dosage: 80 MG, SINGLE
     Route: 008
  2. TRIAMCINOLONE [Suspect]
     Dosage: 5 MG, UNK
  3. PREDNISONE [Concomitant]
     Indication: POLYMYALGIA RHEUMATICA
     Dosage: 5 MG, 1X/DAY
     Route: 048

REACTIONS (3)
  - INCORRECT ROUTE OF DRUG ADMINISTRATION [None]
  - PHYSICAL ASSAULT [None]
  - PSYCHOTIC DISORDER [None]
